FAERS Safety Report 8939506 (Version 1)
Quarter: 2012Q4

REPORT INFORMATION
  Report Type: 
  Country: DK (occurrence: DK)
  Receive Date: 20121203
  Receipt Date: 20121203
  Transmission Date: 20130627
  Serious: Yes (Hospitalization)
  Sender: FDA-Public Use
  Company Number: DK-COVIDIEN/TYCO HEALTHCARE/MALLINCKRODT-T201204195

PATIENT
  Age: 58 Year
  Sex: Female
  Weight: 70 kg

DRUGS (1)
  1. OPTIRAY 350 [Suspect]
     Dosage: 95 ml, single
     Route: 042
     Dates: start: 20121123, end: 20121123

REACTIONS (3)
  - Dyspnoea [Unknown]
  - Cardiovascular insufficiency [Unknown]
  - Tremor [Unknown]
